FAERS Safety Report 18446182 (Version 1)
Quarter: 2020Q4

REPORT INFORMATION
  Report Type: Spontaneous
  Country: JP (occurrence: JP)
  Receive Date: 20201030
  Receipt Date: 20201030
  Transmission Date: 20210114
  Serious: Yes (Hospitalization)
  Sender: FDA-Public Use
  Company Number: JP-ASTRAZENECA-2020SF39731

PATIENT
  Age: 83 Year
  Sex: Female

DRUGS (5)
  1. BONALON [Suspect]
     Active Substance: ALENDRONATE SODIUM
     Route: 048
     Dates: start: 201810
  2. NORVASC [Suspect]
     Active Substance: AMLODIPINE BESYLATE
     Route: 048
     Dates: start: 201810
  3. FASENRA [Suspect]
     Active Substance: BENRALIZUMAB
     Indication: ASTHMA
     Dosage: 30.0MG UNKNOWN
     Route: 058
     Dates: start: 20200110, end: 20200918
  4. BELSOMRA [Suspect]
     Active Substance: SUVOREXANT
     Route: 048
     Dates: start: 201810
  5. ARICEPT [Suspect]
     Active Substance: DONEPEZIL HYDROCHLORIDE
     Route: 048
     Dates: start: 201810

REACTIONS (2)
  - Physical deconditioning [Unknown]
  - Organising pneumonia [Recovered/Resolved]

NARRATIVE: CASE EVENT DATE: 20200918
